FAERS Safety Report 7890507-7 (Version None)
Quarter: 2011Q4

REPORT INFORMATION
  Report Type: 
  Country: None (occurrence: None)
  Receive Date: 20111103
  Receipt Date: 20110720
  Transmission Date: 20120403
  Serious: No
  Sender: FDA-Public Use
  Company Number: US-AMGEN-USASP2011036836

PATIENT
  Sex: Male

DRUGS (1)
  1. ENBREL [Suspect]
     Indication: RHEUMATOID ARTHRITIS
     Dosage: 50 MG, QWK
     Dates: start: 20101217

REACTIONS (6)
  - FATIGUE [None]
  - MYALGIA [None]
  - PAIN [None]
  - INFLUENZA LIKE ILLNESS [None]
  - NAUSEA [None]
  - MALAISE [None]
